FAERS Safety Report 8607330 (Version 4)
Quarter: 2012Q4

REPORT INFORMATION
  Report Type: 
  Country: US (occurrence: US)
  Receive Date: 20120611
  Receipt Date: 20121106
  Transmission Date: 20130627
  Serious: Yes (Hospitalization)
  Sender: FDA-Public Use
  Company Number: US-BAYER-2012-055837

PATIENT
  Age: 26 Year
  Sex: Female
  Weight: 87.53 kg

DRUGS (11)
  1. YASMIN [Suspect]
     Indication: ACNE
     Dosage: UNK
     Dates: start: 20081009, end: 201009
  2. YASMIN [Suspect]
     Indication: SPOTTING BETWEEN MENSES
  3. FLONASE [Concomitant]
     Dosage: 50 mcg
     Dates: start: 20100621
  4. TYLENOL #3 [Concomitant]
     Dosage: 300-30mg
     Route: 048
     Dates: start: 20100911
  5. DOCUSATE SODIUM W/SENNOSIDE A+B [Concomitant]
     Dosage: 8.6-50mg
     Route: 048
     Dates: start: 20100911
  6. RIZATRIPTAN [Concomitant]
     Dosage: 5 mg, UNK
     Route: 048
     Dates: start: 20100911
  7. OMEPRAZOLE [Concomitant]
     Dosage: 20 mg, UNK
     Route: 048
     Dates: start: 20100911
  8. ACETAMINOPHEN W/CODEINE [Concomitant]
  9. SENEKOT [Concomitant]
  10. DESONIDE [Concomitant]
  11. ADVIL [Concomitant]
     Indication: PAIN

REACTIONS (8)
  - Pulmonary embolism [None]
  - Emotional distress [None]
  - Anhedonia [None]
  - Pain [None]
  - General physical health deterioration [None]
  - Injury [None]
  - Pain [None]
  - Anxiety [None]
